FAERS Safety Report 7557515-7 (Version None)
Quarter: 2011Q2

REPORT INFORMATION
  Report Type: 
  Country: None (occurrence: None)
  Receive Date: 20110610
  Receipt Date: 20110527
  Transmission Date: 20111010
  Serious: No
  Sender: FDA-Public Use
  Company Number: SPI201100151

PATIENT
  Age: 50 Year
  Sex: Female
  Weight: 77.1 kg

DRUGS (4)
  1. TOPAMAX [Concomitant]
  2. FEXOFENADINE HCL [Concomitant]
  3. NEXIUM [Concomitant]
  4. AMITIZA [Suspect]
     Indication: IRRITABLE BOWEL SYNDROME
     Dosage: 24 MCG, BID, ORAL
     Route: 048
     Dates: start: 20070401, end: 20110527

REACTIONS (2)
  - CHEST PAIN [None]
  - CHEST DISCOMFORT [None]
